FAERS Safety Report 6137455-0 (Version None)
Quarter: 2009Q1

REPORT INFORMATION
  Report Type: 
  Country: None (occurrence: None)
  Receive Date: 20090326
  Receipt Date: 20090316
  Transmission Date: 20090719
  Serious: Yes (Other)
  Sender: FDA-Public Use
  Company Number: GXKR2009IT03355

PATIENT
  Age: 49 Year
  Sex: Male

DRUGS (1)
  1. NITROGLYCERIN [Suspect]
     Indication: FROSTBITE
     Dosage: TWO 10 MG PATCHES, TRANSDERMAL
     Route: 062
     Dates: start: 20070101

REACTIONS (4)
  - ALTERED STATE OF CONSCIOUSNESS [None]
  - ATAXIA [None]
  - MOUNTAIN SICKNESS ACUTE [None]
  - VOMITING [None]
